FAERS Safety Report 18240669 (Version 1)
Quarter: 2020Q3

REPORT INFORMATION
  Report Type: Report from Study
  Country: US (occurrence: US)
  Receive Date: 20200908
  Receipt Date: 20200908
  Transmission Date: 20201103
  Serious: Yes (Other)
  Sender: FDA-Public Use
  Company Number: US-PFIZER INC-2020332940

PATIENT
  Age: 22 Year
  Sex: Female

DRUGS (2)
  1. MANNITOL. [Suspect]
     Active Substance: MANNITOL
     Indication: BRAIN OEDEMA
     Dosage: 1407 MOSM, (INFUSED)
     Route: 042
  2. MANNITOL. [Suspect]
     Active Substance: MANNITOL
     Indication: CHRONIC KIDNEY DISEASE
     Dosage: 256 G, (INFUSED)
     Route: 042

REACTIONS (2)
  - Toxicity to various agents [Unknown]
  - Coma [Unknown]
